FAERS Safety Report 9788077 (Version 1)
Quarter: 2013Q4

REPORT INFORMATION
  Report Type: Spontaneous
  Country: US (occurrence: None)
  Receive Date: 20131227
  Receipt Date: 20131227
  Transmission Date: 20140711
  Serious: Yes (Hospitalization)
  Sender: FDA-Public Use
  Company Number: None

PATIENT
  Age: 30 Year
  Sex: Female
  Weight: 89.9 kg

DRUGS (3)
  1. MONONESSA [Suspect]
     Indication: CONTRACEPTION
     Dosage: 1??CHRONIC
     Route: 048
  2. TOPIRAMATE [Concomitant]
  3. LEVOTHYROXINE [Concomitant]

REACTIONS (3)
  - Pulmonary embolism [None]
  - Deep vein thrombosis [None]
  - Deep vein thrombosis [None]
